FAERS Safety Report 13886776 (Version 1)
Quarter: 2017Q3

REPORT INFORMATION
  Report Type: Spontaneous
  Country: PT (occurrence: PT)
  Receive Date: 20170821
  Receipt Date: 20170821
  Transmission Date: 20171127
  Serious: Yes (Other)
  Sender: FDA-Public Use
  Company Number: PT-TEVA-796956ISR

PATIENT
  Sex: Female
  Weight: 58 kg

DRUGS (3)
  1. YASMINELLE [Concomitant]
     Active Substance: DROSPIRENONE
     Indication: ORAL CONTRACEPTION
     Dosage: 1 DOSAGE FORMS DAILY;
     Route: 048
  2. AMOXICILLIN+ CLAVULANIC ACID SANDOZ 875 MG + 125 MG COMPRIMIDOS REV [Suspect]
     Active Substance: AMOXICILLIN\CLAVULANIC ACID
     Indication: TOOTH INFECTION
     Dosage: 2 DOSAGE FORMS DAILY; 12/12 HOURS
     Route: 048
  3. AMOXICILLIN+ CLAVULANIC ACID RATIOPHARM 875 MG + 125MG COMPRIMIDOS [Suspect]
     Active Substance: AMOXICILLIN\CLAVULANIC ACID
     Indication: TOOTH INFECTION
     Dosage: 2 DOSAGE FORMS DAILY; 12/12 H
     Route: 048

REACTIONS (3)
  - Lipase increased [Recovered/Resolved]
  - Abdominal pain upper [Recovered/Resolved]
  - Amylase increased [Recovered/Resolved]
